FAERS Safety Report 4425687-9 (Version None)
Quarter: 2004Q3

REPORT INFORMATION
  Report Type: 
  Country: None (occurrence: None)
  Receive Date: 20040810
  Receipt Date: 20040714
  Transmission Date: 20050211
  Serious: Yes (Hospitalization)
  Sender: FDA-Public Use
  Company Number: 8482

PATIENT
  Age: 54 Year
  Sex: Male

DRUGS (16)
  1. METHOTREXATE [Suspect]
     Indication: RHEUMATOID ARTHRITIS
     Dosage: 18.75 MG WEEKLY SC
     Route: 058
     Dates: start: 19980318, end: 20040514
  2. PLAQUENIL [Concomitant]
  3. PREDNISONE [Concomitant]
  4. ASPIRIN [Concomitant]
  5. ACCUPRIL [Concomitant]
  6. ALLOPURINOL [Concomitant]
  7. ZYRTEC-D 12 HOUR [Concomitant]
  8. LITHIUM [Concomitant]
  9. NEURONTIN [Concomitant]
  10. FOLIC ACID [Concomitant]
  11. VIAGRA [Concomitant]
  12. LORCET-HD [Concomitant]
  13. AXID [Concomitant]
  14. CALCIUM WITH VITAMIN D [Concomitant]
  15. ACTONEL [Concomitant]
  16. XANAX [Concomitant]

REACTIONS (2)
  - BRONCHITIS [None]
  - LEUKOCYTOSIS [None]
